FAERS Safety Report 17572400 (Version 1)
Quarter: 2020Q1

REPORT INFORMATION
  Report Type: Spontaneous
  Country: US (occurrence: US)
  Receive Date: 20200323
  Receipt Date: 20200323
  Transmission Date: 20200409
  Serious: No
  Sender: FDA-Public Use
  Company Number: US-FRESENIUS KABI-FK202002735

PATIENT
  Sex: Male

DRUGS (1)
  1. OMEGAVEN [Suspect]
     Active Substance: FISH OIL
     Indication: PARENTERAL NUTRITION
     Dosage: 1 GM PER KG PER DAY (GIR:16MG PER KG PER MIN)
     Route: 065
     Dates: start: 202003

REACTIONS (2)
  - Weight gain poor [Unknown]
  - Malnutrition [Unknown]
